FAERS Safety Report 18446232 (Version 2)
Quarter: 2020Q4

REPORT INFORMATION
  Report Type: Spontaneous
  Country: SI (occurrence: SI)
  Receive Date: 20201030
  Receipt Date: 20201102
  Transmission Date: 20210114
  Serious: Yes (Death, Hospitalization)
  Sender: FDA-Public Use
  Company Number: SI-BAYER-2020-228175

PATIENT
  Age: 60 Year
  Sex: Male

DRUGS (1)
  1. CIPROBAY 500 MG [Suspect]
     Active Substance: CIPROFLOXACIN
     Dosage: UNK
     Route: 048

REACTIONS (7)
  - Pancreatitis [Fatal]
  - Pyrexia [None]
  - Gastrointestinal inflammation [None]
  - Abdominal pain [Fatal]
  - Chills [None]
  - Diarrhoea [Fatal]
  - Nausea [Fatal]
